FAERS Safety Report 4888265-3 (Version None)
Quarter: 2006Q1

REPORT INFORMATION
  Report Type: 
  Country: None (occurrence: None)
  Receive Date: 20060119
  Receipt Date: 20051229
  Transmission Date: 20060701
  Serious: Yes (Hospitalization, Disabling)
  Sender: FDA-Public Use
  Company Number: 408618

PATIENT
  Age: 15 Year
  Sex: Female
  Weight: 55.8 kg

DRUGS (2)
  1. ACCUTANE [Suspect]
     Indication: ACNE
     Dosage: 20 MG DAILY ORAL
     Route: 048
     Dates: start: 20020105, end: 20020714
  2. VALTREX [Concomitant]

REACTIONS (39)
  - ACTIVITIES OF DAILY LIVING IMPAIRED [None]
  - ALPHA-1 ANTI-TRYPSIN INCREASED [None]
  - ANHEDONIA [None]
  - ANXIETY [None]
  - ARTHRITIS [None]
  - AUTOIMMUNE HEPATITIS [None]
  - CHEST PAIN [None]
  - CONDITION AGGRAVATED [None]
  - DIZZINESS [None]
  - DRUG EFFECT DECREASED [None]
  - DRY EYE [None]
  - DRY SKIN [None]
  - EAR DISCOMFORT [None]
  - EUSTACHIAN TUBE DYSFUNCTION [None]
  - FATIGUE [None]
  - GASTROINTESTINAL DISORDER [None]
  - HAEMATOCHEZIA [None]
  - HEADACHE [None]
  - HEPATOCELLULAR DAMAGE [None]
  - INJURY [None]
  - LIGAMENT CALCIFICATION [None]
  - LIP DRY [None]
  - LIVER DISORDER [None]
  - MUSCULOSKELETAL STIFFNESS [None]
  - MYALGIA [None]
  - NECK PAIN [None]
  - OTITIS MEDIA [None]
  - PAIN [None]
  - PARALYSIS [None]
  - PHARYNGITIS [None]
  - RECTAL HAEMORRHAGE [None]
  - ROAD TRAFFIC ACCIDENT [None]
  - SOMNOLENCE [None]
  - STRESS [None]
  - SUBACUTE ENDOCARDITIS [None]
  - SYNOVITIS [None]
  - TENDON CALCIFICATION [None]
  - TONSILLITIS [None]
  - UPPER RESPIRATORY TRACT INFECTION [None]
